FAERS Safety Report 4632726-9 (Version None)
Quarter: 2005Q2

REPORT INFORMATION
  Report Type: 
  Country: None (occurrence: None)
  Receive Date: 20050412
  Receipt Date: 20050331
  Transmission Date: 20051028
  Serious: Yes (Hospitalization)
  Sender: FDA-Public Use
  Company Number: US-KINGPHARMUSA00001-K200500456

PATIENT
  Age: 74 Year
  Sex: Male

DRUGS (6)
  1. ALTACE [Suspect]
     Indication: ESSENTIAL HYPERTENSION
     Dosage: 5 MG, BID
     Route: 048
     Dates: start: 20041209
  2. VERAPAMIL [Suspect]
     Indication: ESSENTIAL HYPERTENSION
     Dosage: 240 MG, QD
     Route: 048
     Dates: start: 20040601, end: 20041217
  3. METOPROLOL SUCCINATE [Suspect]
     Indication: ESSENTIAL HYPERTENSION
     Dosage: 100 MG, QD
     Route: 048
     Dates: start: 20040601, end: 20041217
  4. SORTIS ^GOEDECKE^ [Suspect]
     Indication: HYPERLIPIDAEMIA
     Dosage: 40 MG, QD
     Route: 048
     Dates: start: 20041202
  5. MARCOUMAR [Concomitant]
     Dosage: 3 MG, UNK
     Route: 048
     Dates: start: 20040601
  6. ZYPREXA [Concomitant]
     Indication: MENTAL DISORDER
     Dosage: 5 MG, UNK
     Route: 048
     Dates: start: 20040601

REACTIONS (9)
  - BRADYCARDIA [None]
  - DIABETIC DERMOPATHY [None]
  - DIZZINESS [None]
  - HYPOTENSION [None]
  - HYPOTONIC-HYPORESPONSIVE EPISODE [None]
  - LIVIDITY [None]
  - NAUSEA [None]
  - SOMNOLENCE [None]
  - SYNCOPE [None]
